FAERS Safety Report 5928968-2 (Version None)
Quarter: 2008Q3

REPORT INFORMATION
  Report Type: 
  Country: None (occurrence: None)
  Receive Date: 20080924
  Receipt Date: 20080714
  Transmission Date: 20090109
  Serious: Yes (Other)
  Sender: FDA-Public Use
  Company Number: PHEH2008US06303

PATIENT
  Age: 53 Year
  Sex: Female
  Weight: 53.5 kg

DRUGS (2)
  1. COMBIPATCH [Suspect]
     Dosage: 50/250, TRANSDERMAL
     Route: 062
     Dates: start: 19970101, end: 20030101
  2. WELLBUTRIN SR [Concomitant]

REACTIONS (9)
  - BIOPSY BREAST [None]
  - BREAST CALCIFICATIONS [None]
  - BREAST CANCER STAGE II [None]
  - BREAST MASS [None]
  - BREAST RECONSTRUCTION [None]
  - MALIGNANT BREAST LUMP REMOVAL [None]
  - MAMMOGRAM ABNORMAL [None]
  - MASTECTOMY [None]
  - ULTRASOUND SCAN ABNORMAL [None]
